FAERS Safety Report 8952573 (Version 1)
Quarter: 2012Q4

REPORT INFORMATION
  Report Type: 
  Country: JP (occurrence: JP)
  Receive Date: 20121205
  Receipt Date: 20121205
  Transmission Date: 20130627
  Serious: Yes (Hospitalization)
  Sender: FDA-Public Use
  Company Number: JP-BRISTOL-MYERS SQUIBB COMPANY-17153917

PATIENT
  Age: 59 Year
  Sex: Male

DRUGS (2)
  1. TAXOL [Suspect]
     Indication: LUNG NEOPLASM MALIGNANT
     Route: 041
     Dates: start: 20120905
  2. RESTAMIN [Concomitant]
     Dosage: Tab
     Route: 048
     Dates: start: 20120905

REACTIONS (1)
  - Urinary retention [Recovered/Resolved]
